FAERS Safety Report 8158059-4 (Version None)
Quarter: 2012Q1

REPORT INFORMATION
  Report Type: 
  Country: None (occurrence: None)
  Receive Date: 20120222
  Receipt Date: 20120220
  Transmission Date: 20120608
  Serious: Yes (Life-Threatening, Hospitalization)
  Sender: FDA-Public Use
  Company Number: PHHO2012CZ001698

PATIENT
  Sex: Female
  Weight: 62 kg

DRUGS (11)
  1. INDAP [Concomitant]
     Indication: HYPERTENSION
     Dosage: UNK
     Dates: start: 20030101
  2. COMPARATOR TRASTUZUMAB [Suspect]
     Dosage: 126 MG, QW
     Route: 042
     Dates: start: 20120201
  3. NEURONTIN [Concomitant]
     Indication: PAIN
     Dosage: UNK
     Route: 048
     Dates: start: 20110301
  4. AFINITOR [Suspect]
     Indication: BREAST CANCER METASTATIC
     Dosage: CODE NOT BROKEN
     Route: 048
     Dates: start: 20110817, end: 20120123
  5. ZOLPIDEM [Concomitant]
     Indication: INSOMNIA
     Dosage: UNK
     Dates: start: 20090101
  6. OMEPRAZOLE [Concomitant]
     Dosage: UNK
     Dates: start: 20110101
  7. COMPARATOR TRASTUZUMAB [Suspect]
     Indication: BREAST CANCER METASTATIC
     Dosage: 126 MG, QW
     Route: 042
     Dates: start: 20110817, end: 20120124
  8. ATENOLOL [Concomitant]
     Indication: HYPERTENSION
     Dosage: UNK
     Dates: start: 20100101
  9. BLINDED NO TREATMENT RECEIVED [Suspect]
     Indication: BREAST CANCER METASTATIC
     Dosage: CODE NOT BROKEN
     Route: 048
     Dates: start: 20110817, end: 20120123
  10. BLINDED PLACEBO [Suspect]
     Indication: BREAST CANCER METASTATIC
     Dosage: CODE NOT BROKEN
     Route: 048
     Dates: start: 20110817, end: 20120123
  11. VINORELBINE [Suspect]
     Indication: BREAST CANCER METASTATIC
     Dosage: 41 MG, QW
     Route: 048
     Dates: start: 20110817, end: 20120118

REACTIONS (6)
  - VOMITING [None]
  - DECREASED APPETITE [None]
  - ANAEMIA [None]
  - CHEST PAIN [None]
  - PYREXIA [None]
  - DIARRHOEA [None]
